FAERS Safety Report 21174811 (Version 2)
Quarter: 2024Q3

REPORT INFORMATION
  Report Type: Spontaneous
  Country: US (occurrence: US)
  Receive Date: 20220805
  Receipt Date: 20240802
  Transmission Date: 20241016
  Serious: Yes (Other)
  Sender: ACCORD
  Company Number: US-Accord-264736

PATIENT
  Age: 38 Year
  Sex: Female

DRUGS (2)
  1. DOCETAXEL [Suspect]
     Active Substance: DOCETAXEL\DOCETAXEL ANHYDROUS
     Indication: Breast cancer
     Dosage: NUMBER OF CYCLES: 4 CYCLES?FREQUENCY: EVERY 3 WEEKS?DOSAGE: C1: 140MG?C2-C4: 142MG
     Dates: start: 20180921, end: 20181121
  2. CYCLOPHOSPHAMIDE [Suspect]
     Active Substance: CYCLOPHOSPHAMIDE
     Indication: Breast cancer
     Dosage: NUMBER OF CYCLES: 4 CYCLES?FREQUENCY: EVERY 3 WEEKS?DOSAGE: C1: 140MG?C2-C4: 142MG
     Dates: start: 20180921, end: 20181121

REACTIONS (3)
  - Dacryostenosis acquired [Not Recovered/Not Resolved]
  - Dry eye [Unknown]
  - Swelling of eyelid [Unknown]

NARRATIVE: CASE EVENT DATE: 20191101
